FAERS Safety Report 4642824-1 (Version None)
Quarter: 2005Q2

REPORT INFORMATION
  Report Type: 
  Country: None (occurrence: None)
  Receive Date: 20050422
  Receipt Date: 20050418
  Transmission Date: 20051028
  Serious: Yes (Death, Hospitalization, Disabling)
  Sender: FDA-Public Use
  Company Number: JP-BRISTOL-MYERS SQUIBB COMPANY-12938189

PATIENT
  Age: 82 Year
  Sex: Female

DRUGS (1)
  1. STADOL [Suspect]
     Indication: SURGERY
     Route: 042

REACTIONS (5)
  - ANGINA PECTORIS [None]
  - APALLIC SYNDROME [None]
  - CARDIAC ARREST [None]
  - DEATH [None]
  - ELECTROCARDIOGRAM ST SEGMENT ELEVATION [None]
